FAERS Safety Report 9216032 (Version 2)
Quarter: 2013Q2

REPORT INFORMATION
  Report Type: Spontaneous
  Country: US (occurrence: US)
  Receive Date: 20130408
  Receipt Date: 20130411
  Transmission Date: 20140414
  Serious: Yes (Death, Other)
  Sender: FDA-Public Use
  Company Number: US-JNJFOC-20130402613

PATIENT
  Sex: 0

DRUGS (12)
  1. DOXORUBICIN [Suspect]
     Indication: HODGKIN^S DISEASE
     Dosage: PRIMARY CHEMOTHERAPY
     Route: 042
  2. BLEOMYCIN [Suspect]
     Indication: HODGKIN^S DISEASE
     Dosage: PRIMARY CHEMOTHERAPY
     Route: 065
  3. VINBLASTIN [Suspect]
     Indication: HODGKIN^S DISEASE
     Dosage: PAVE THERAPY (SECONDARY CHEMOTHERAPY FOR RELAPSE)
     Route: 065
  4. VINBLASTIN [Suspect]
     Indication: HODGKIN^S DISEASE
     Dosage: PRIMARY CHEMOTHERAPY
     Route: 065
  5. DACARBAZINE [Suspect]
     Indication: HODGKIN^S DISEASE
     Dosage: PRIMARY CHEMOTHERAPY
     Route: 065
  6. PROCARBAZINE [Suspect]
     Indication: HODGKIN^S DISEASE
     Dosage: PRIMARY CHEMOTHERAPY (MOPP REGIMEN)
     Route: 065
  7. PROCARBAZINE [Suspect]
     Indication: HODGKIN^S DISEASE
     Dosage: PAVE THERAPY (SECONDARY CHEMOTHERAPY FOR RELAPSE)
     Route: 065
  8. MECHLORETHAMINE [Suspect]
     Indication: HODGKIN^S DISEASE
     Dosage: PRIMARY CHEMOTHERAPY
     Route: 065
  9. VINCRISTINE [Suspect]
     Indication: HODGKIN^S DISEASE
     Dosage: PRIMARY CHEMOTHERAPY
     Route: 065
  10. PREDNISONE [Suspect]
     Indication: HODGKIN^S DISEASE
     Dosage: PRIMARY CHEMOTHERAPY
     Route: 065
  11. THERAPEUTIC RADIOPHARMACEUTICALS [Suspect]
     Indication: HODGKIN^S DISEASE
     Dosage: 30 GRAY
     Route: 065
  12. MELPHALAN [Suspect]
     Indication: HODGKIN^S DISEASE
     Dosage: PAVE THERAPY (SECONDARY CHEMOTHERAPY FOR RELAPSE)
     Route: 065

REACTIONS (3)
  - Acute myeloid leukaemia [Fatal]
  - Myelodysplastic syndrome [Fatal]
  - Hodgkin^s disease recurrent [Unknown]
